FAERS Safety Report 16850094 (Version 3)
Quarter: 2019Q4

REPORT INFORMATION
  Report Type: Report from Study
  Country: None (occurrence: US)
  Receive Date: 20190925
  Receipt Date: 20191216
  Transmission Date: 20200122
  Serious: Yes (Hospitalization, Other)
  Sender: FDA-Public Use
  Company Number: US-ABBVIE-19K-163-2909264-00

PATIENT
  Age: 72 Year
  Sex: Female

DRUGS (3)
  1. HUMIRA [Suspect]
     Active Substance: ADALIMUMAB
     Indication: RHEUMATOID ARTHRITIS
     Route: 058
  2. HUMIRA [Suspect]
     Active Substance: ADALIMUMAB
     Indication: PSORIASIS
     Route: 058
  3. HUMIRA [Suspect]
     Active Substance: ADALIMUMAB
     Indication: PSORIATIC ARTHROPATHY
     Route: 058

REACTIONS (12)
  - Chronic kidney disease [Unknown]
  - Dental prosthesis placement [Unknown]
  - Upper limb fracture [Recovering/Resolving]
  - Chronic kidney disease [Recovered/Resolved]
  - Fall [Unknown]
  - Fall [Unknown]
  - Nerve compression [Unknown]
  - Wrist fracture [Recovering/Resolving]
  - Fall [Recovering/Resolving]
  - Balance disorder [Unknown]
  - Limb injury [Unknown]
  - Joint injury [Unknown]

NARRATIVE: CASE EVENT DATE: 201910
